FAERS Safety Report 17976521 (Version 2)
Quarter: 2020Q3

REPORT INFORMATION
  Report Type: Spontaneous
  Country: GB (occurrence: GB)
  Receive Date: 20200703
  Receipt Date: 20200917
  Transmission Date: 20201103
  Serious: Yes (Death, Life-Threatening, Other)
  Sender: FDA-Public Use
  Company Number: GB-TAKEDA-2020TEU005690

PATIENT
  Age: 93 Year
  Sex: Female
  Weight: 45 kg

DRUGS (14)
  1. ORAMORPH [Concomitant]
     Active Substance: MORPHINE SULFATE
     Dosage: UNK
  2. FOSTAIR [Concomitant]
     Active Substance: BECLOMETHASONE\FORMOTEROL
     Dosage: UNK
  3. LAXIDO [Suspect]
     Active Substance: POLYETHYLENE GLYCOL 3350\POTASSIUM CHLORIDE\SODIUM BICARBONATE\SODIUM CHLORIDE
     Indication: CONSTIPATION
     Dosage: 13.13 MILLIGRAM
     Route: 048
     Dates: start: 20200117, end: 20200601
  4. BUMETANIDE. [Suspect]
     Active Substance: BUMETANIDE
     Indication: GASTROOESOPHAGEAL REFLUX DISEASE
     Dosage: UNK
     Route: 065
  5. ATORVASTATIN [Concomitant]
     Active Substance: ATORVASTATIN
     Dosage: UNK
  6. MACROGOL [Suspect]
     Active Substance: POLYETHYLENE GLYCOLS
     Indication: PRODUCT USED FOR UNKNOWN INDICATION
     Dosage: UNK
     Route: 065
  7. BUMETANIDE. [Suspect]
     Active Substance: BUMETANIDE
     Indication: FLUID RETENTION
     Dosage: 5 MILLIGRAM
     Route: 048
     Dates: end: 20200601
  8. A TO Z [Concomitant]
     Active Substance: MINERALS\VITAMINS
     Dosage: UNK
  9. LANSOPRAZOLE. [Suspect]
     Active Substance: LANSOPRAZOLE
     Indication: GASTROOESOPHAGEAL REFLUX DISEASE
     Dosage: 15 MILLIGRAM
     Route: 048
  10. BUMETANIDE. [Suspect]
     Active Substance: BUMETANIDE
     Indication: RALES
  11. LEVOTHYROXINE SODIUM. [Concomitant]
     Active Substance: LEVOTHYROXINE SODIUM
     Dosage: UNK
  12. CLOPIDOGREL [Concomitant]
     Active Substance: CLOPIDOGREL BISULFATE
     Dosage: UNK
  13. VENTOLIN [Concomitant]
     Active Substance: ALBUTEROL SULFATE
     Dosage: UNK
  14. CETIRIZINE [Concomitant]
     Active Substance: CETIRIZINE HYDROCHLORIDE
     Dosage: UNK

REACTIONS (9)
  - Renal impairment [Fatal]
  - Hypernatraemia [Fatal]
  - Pruritus [Fatal]
  - Confusional state [Fatal]
  - Death [Fatal]
  - Malaise [Fatal]
  - Rash [Fatal]
  - Atrial fibrillation [Fatal]
  - Hypokalaemia [Fatal]

NARRATIVE: CASE EVENT DATE: 20200529
